FAERS Safety Report 16934299 (Version 2)
Quarter: 2019Q4

REPORT INFORMATION
  Report Type: Spontaneous
  Country: US (occurrence: US)
  Receive Date: 20191018
  Receipt Date: 20191030
  Transmission Date: 20200122
  Serious: No
  Sender: FDA-Public Use
  Company Number: US-JNJFOC-20191021916

PATIENT
  Age: 41 Year
  Sex: Female
  Weight: 49.94 kg

DRUGS (2)
  1. STELARA [Suspect]
     Active Substance: USTEKINUMAB
     Indication: CROHN^S DISEASE
     Route: 058
     Dates: start: 20190915, end: 20190915
  2. STELARA [Suspect]
     Active Substance: USTEKINUMAB
     Route: 058
     Dates: start: 2019

REACTIONS (3)
  - Product dose omission [Unknown]
  - Self-medication [Unknown]
  - Syringe issue [Unknown]

NARRATIVE: CASE EVENT DATE: 201910
